FAERS Safety Report 18799728 (Version 1)
Quarter: 2021Q1

REPORT INFORMATION
  Report Type: Spontaneous
  Country: US (occurrence: US)
  Receive Date: 20210128
  Receipt Date: 20210128
  Transmission Date: 20210419
  Serious: Yes (Hospitalization)
  Sender: FDA-Public Use
  Company Number: None

PATIENT
  Age: 62 Year
  Sex: Female
  Weight: 63 kg

DRUGS (3)
  1. CEPHALEXIN. [Suspect]
     Active Substance: CEPHALEXIN
     Indication: PREMEDICATION
     Route: 048
     Dates: start: 20210127, end: 20210127
  2. ESTRADIOL. [Concomitant]
     Active Substance: ESTRADIOL
  3. CEPHALEXIN. [Suspect]
     Active Substance: CEPHALEXIN
     Indication: DENTAL IMPLANTATION
     Route: 048
     Dates: start: 20210127, end: 20210127

REACTIONS (1)
  - Anaphylactic reaction [None]

NARRATIVE: CASE EVENT DATE: 20210127
